FAERS Safety Report 9864888 (Version 1)
Quarter: 2014Q1

REPORT INFORMATION
  Report Type: Spontaneous
  Country: US (occurrence: US)
  Receive Date: 20140203
  Receipt Date: 20140203
  Transmission Date: 20141002
  Serious: Yes (Other)
  Sender: FDA-Public Use
  Company Number: US-AMGEN-USASP2014006674

PATIENT
  Age: 45 Year
  Sex: Male

DRUGS (1)
  1. ENBREL [Suspect]
     Indication: ANKYLOSING SPONDYLITIS
     Dosage: 25 MG, 2 TIMES/WK
     Route: 065

REACTIONS (7)
  - Uveitis [Recovered/Resolved]
  - Headache [Not Recovered/Not Resolved]
  - Sinus headache [Not Recovered/Not Resolved]
  - Tension headache [Not Recovered/Not Resolved]
  - Migraine [Recovered/Resolved]
  - Stress [Not Recovered/Not Resolved]
  - Injection site pain [Not Recovered/Not Resolved]
